FAERS Safety Report 4266278-2 (Version None)
Quarter: 2004Q1

REPORT INFORMATION
  Report Type: 
  Country: None (occurrence: None)
  Receive Date: 20040106
  Receipt Date: 20031223
  Transmission Date: 20041129
  Serious: Yes (Other)
  Sender: FDA-Public Use
  Company Number: 2003126350

PATIENT
  Age: 26 Year
  Sex: Female

DRUGS (6)
  1. ATARAX [Suspect]
     Indication: PREMATURE BABY
     Dosage: 75 MG (TID), ORAL
     Route: 048
     Dates: start: 20030901, end: 20031022
  2. SALBUTAMOL          (SALBUTAMOL) [Concomitant]
  3. DIOSMIN (DIOSMIN) [Concomitant]
  4. DYNAMAG (PYRIDOXINE HYDROCHLORIDE, MAGNESIUM LACTATE) [Concomitant]
  5. SPASFON (PHLOROGLUCINOL, TRIMETHYLPHLOROGLUCINOL) [Concomitant]
  6. BETAMETHASONE [Concomitant]

REACTIONS (4)
  - CAESAREAN SECTION [None]
  - COMPLICATIONS OF MATERNAL EXPOSURE TO THERAPEUTIC DRUGS [None]
  - HYPERTENSION [None]
  - PREMATURE LABOUR [None]
